FAERS Safety Report 6733967-7 (Version None)
Quarter: 2010Q2

REPORT INFORMATION
  Report Type: 
  Country: None (occurrence: None)
  Receive Date: 20100518
  Receipt Date: 20100503
  Transmission Date: 20101027
  Serious: Yes (Hospitalization, Other)
  Sender: FDA-Public Use
  Company Number: 235175K09USA

PATIENT
  Age: 56 Year
  Sex: Female

DRUGS (5)
  1. REBIF [Suspect]
     Indication: MULTIPLE SCLEROSIS
     Dosage: 44 MCG, 3 IN 1 WK, SUBCUTANEOUS; 22 MCG; 44 MCG;
     Route: 058
     Dates: start: 20050222, end: 20090501
  2. REBIF [Suspect]
     Indication: MULTIPLE SCLEROSIS
     Dosage: 44 MCG, 3 IN 1 WK, SUBCUTANEOUS; 22 MCG; 44 MCG;
     Route: 058
     Dates: start: 20090801, end: 20100101
  3. REBIF [Suspect]
     Indication: MULTIPLE SCLEROSIS
     Dosage: 44 MCG, 3 IN 1 WK, SUBCUTANEOUS; 22 MCG; 44 MCG;
     Route: 058
     Dates: start: 20100101
  4. MOTRIN [Concomitant]
  5. STEROID (CORTICOSTEROID NOS) [Concomitant]

REACTIONS (4)
  - FAECAL INCONTINENCE [None]
  - URINARY INCONTINENCE [None]
  - VAGINAL CANCER [None]
  - WHITE BLOOD CELL COUNT DECREASED [None]
